FAERS Safety Report 6368178-0 (Version None)
Quarter: 2009Q3

REPORT INFORMATION
  Report Type: 
  Country: None (occurrence: None)
  Receive Date: 20090922
  Receipt Date: 20090917
  Transmission Date: 20100115
  Serious: Yes (Death)
  Sender: FDA-Public Use
  Company Number: PHEH2009US05973

PATIENT

DRUGS (1)
  1. EXJADE [Suspect]
     Indication: LABORATORY TEST ABNORMAL
     Dosage: 1000 MG, QD
     Route: 048
     Dates: start: 20090425

REACTIONS (1)
  - DEATH [None]
